FAERS Safety Report 23400272 (Version 1)
Quarter: 2024Q1

REPORT INFORMATION
  Report Type: Spontaneous
  Country: CH (occurrence: CH)
  Receive Date: 20240114
  Receipt Date: 20240114
  Transmission Date: 20240409
  Serious: Yes (Hospitalization)
  Sender: FDA-Public Use
  Company Number: None

PATIENT
  Age: 45 Year
  Sex: Male
  Weight: 92 kg

DRUGS (19)
  1. RISPERDAL CONSTA [Suspect]
     Active Substance: RISPERIDONE
     Indication: Schizophrenia
     Route: 030
     Dates: start: 20230927, end: 20231108
  2. RISPERDAL CONSTA [Suspect]
     Active Substance: RISPERIDONE
  3. RISPERDAL CONSTA [Suspect]
     Active Substance: RISPERIDONE
  4. RISPERDAL CONSTA [Suspect]
     Active Substance: RISPERIDONE
  5. ZUCLOPENTHIXOL ACETATE [Concomitant]
     Active Substance: ZUCLOPENTHIXOL ACETATE
     Dosage: 1X/3 SEMAINES, DERNIERE INJECTION LE 13.12.23
     Route: 030
  6. ZUCLOPENTHIXOL ACETATE [Concomitant]
     Active Substance: ZUCLOPENTHIXOL ACETATE
     Dosage: LE MATIN
  7. ZUCLOPENTHIXOL ACETATE [Concomitant]
     Active Substance: ZUCLOPENTHIXOL ACETATE
     Dosage: LE SOIR
  8. PREGABALIN [Concomitant]
     Active Substance: PREGABALIN
     Dosage: LE MATIN
  9. PREGABALIN [Concomitant]
     Active Substance: PREGABALIN
     Dosage: A MIDI
  10. PREGABALIN [Concomitant]
     Active Substance: PREGABALIN
     Dosage: LE SOIR
  11. VALIUM [Concomitant]
     Active Substance: DIAZEPAM
     Dosage: 10 MG LE MATIN ?5 MG LE SOIR?10MG 1X/J EN RESERVE
  12. ACETYLCYSTEINE [Concomitant]
     Active Substance: ACETYLCYSTEINE
     Dosage: LE MATIN
  13. CLOTHIAPINE [Concomitant]
     Active Substance: CLOTHIAPINE
     Dosage: 40 MG 1X/J AU COUCHER ET 40 MG 2X/J EN RESERVE
  14. MELATONIN [Concomitant]
     Active Substance: MELATONIN
     Dosage: AU COUCHER
  15. SCOPOLAMINE [Concomitant]
     Active Substance: SCOPOLAMINE
     Dosage: 1.5MG/72H
     Route: 062
  16. DIPHENHYDRAMINE HYDROCHLORIDE [Concomitant]
     Active Substance: DIPHENHYDRAMINE HYDROCHLORIDE
     Dosage: AS NECESSARY
  17. BIPERIDEN [Concomitant]
     Active Substance: BIPERIDEN
     Dosage: AS NECESSARY
  18. ACETAMINOPHEN [Concomitant]
     Active Substance: ACETAMINOPHEN
     Dosage: AS NECESSARY
  19. RISPERDAL [Concomitant]
     Active Substance: RISPERIDONE

REACTIONS (1)
  - Tenosynovitis [Recovered/Resolved]

NARRATIVE: CASE EVENT DATE: 20231113
